FAERS Safety Report 5082506-8 (Version None)
Quarter: 2006Q3

REPORT INFORMATION
  Report Type: 
  Country: None (occurrence: None)
  Receive Date: 20060817
  Receipt Date: 20060809
  Transmission Date: 20061208
  Serious: Yes (Hospitalization)
  Sender: FDA-Public Use
  Company Number: JP-MERCK-0608USA02942

PATIENT
  Age: 60 Year
  Sex: Male

DRUGS (4)
  1. GASTRON [Concomitant]
     Indication: DUODENAL ULCER
     Route: 048
     Dates: start: 19980320, end: 20060509
  2. APLACE [Concomitant]
     Indication: DUODENAL ULCER
     Route: 048
     Dates: start: 19980320, end: 20060509
  3. PEPCID [Suspect]
     Indication: DUODENAL ULCER
     Route: 048
     Dates: start: 19980520, end: 20050228
  4. TAKEPRON [Concomitant]
     Indication: DUODENAL ULCER
     Route: 048
     Dates: start: 20050407, end: 20050419

REACTIONS (2)
  - CELLULITIS [None]
  - THROMBOCYTOPENIA [None]
